FAERS Safety Report 12376019 (Version 1)
Quarter: 2016Q2

REPORT INFORMATION
  Report Type: Spontaneous
  Country: US (occurrence: US)
  Receive Date: 20160517
  Receipt Date: 20160517
  Transmission Date: 20160815
  Serious: No
  Sender: FDA-Public Use
  Company Number: US-TARO-2015TAR00936

PATIENT
  Sex: Male
  Weight: 70.75 kg

DRUGS (2)
  1. IMIQUIMOD CREAM 5% [Suspect]
     Active Substance: IMIQUIMOD
     Indication: SKIN CANCER
     Dosage: A LITTLE BIT BIGGER THAN A PEA, MONDAY, TUESDAY, THURSDAY AND FRIDAY AT BEDTIME
     Route: 061
     Dates: start: 201507, end: 20151001
  2. PREDNISONE. [Concomitant]
     Active Substance: PREDNISONE
     Dosage: UNK, AS DIRECTED
     Route: 048
     Dates: start: 20150919, end: 20150928

REACTIONS (6)
  - Pruritus [Recovered/Resolved]
  - Sleep disorder [Recovered/Resolved]
  - Eye swelling [Unknown]
  - White blood cell count increased [Not Recovered/Not Resolved]
  - Urticaria [Recovering/Resolving]
  - Inappropriate schedule of drug administration [Recovered/Resolved]

NARRATIVE: CASE EVENT DATE: 201507
